FAERS Safety Report 18278751 (Version 1)
Quarter: 2020Q3

REPORT INFORMATION
  Report Type: Spontaneous
  Country: TW (occurrence: TW)
  Receive Date: 20200917
  Receipt Date: 20200917
  Transmission Date: 20201103
  Serious: Yes (Hospitalization, Other)
  Sender: FDA-Public Use
  Company Number: TW-VALIDUS PHARMACEUTICALS LLC-TW-2020VAL000763

PATIENT

DRUGS (2)
  1. FUROSEMIDE. [Suspect]
     Active Substance: FUROSEMIDE
     Indication: CARDIAC FAILURE ACUTE
     Dosage: UNK
     Route: 042
  2. GLYCERYL TRINITRATE [Suspect]
     Active Substance: NITROGLYCERIN
     Indication: CARDIAC FAILURE ACUTE
     Dosage: UNK
     Route: 042

REACTIONS (4)
  - Swelling face [Recovered/Resolved]
  - Orthopnoea [Recovered/Resolved]
  - Oedema peripheral [Recovered/Resolved]
  - Tachycardia [Recovered/Resolved]
